FAERS Safety Report 5253395-3 (Version None)
Quarter: 2007Q1

REPORT INFORMATION
  Report Type: 
  Country: None (occurrence: None)
  Receive Date: 20070227
  Receipt Date: 20070212
  Transmission Date: 20070707
  Serious: Yes (Hospitalization)
  Sender: FDA-Public Use
  Company Number: 2006PV025436

PATIENT
  Age: 43 Year
  Sex: Female
  Weight: 108.8633 kg

DRUGS (10)
  1. BYETTA [Suspect]
     Indication: DIABETES MELLITUS NON-INSULIN-DEPENDENT
     Dosage: 10 MCG;BID;SC;5 MCG;BID;SC
     Route: 058
     Dates: start: 20060822, end: 20061004
  2. BYETTA [Suspect]
     Indication: DIABETES MELLITUS NON-INSULIN-DEPENDENT
     Dosage: 10 MCG;BID;SC;5 MCG;BID;SC
     Route: 058
     Dates: start: 20061001, end: 20061204
  3. GLYBURIDE [Concomitant]
  4. GLIMEPIRIDE [Concomitant]
  5. QUINAPRIL [Concomitant]
  6. GABAPENTIN [Concomitant]
  7. PRILOSEC [Concomitant]
  8. POTASSIUM CHLORIDE [Concomitant]
  9. ACETAMINOPHEN AND HYDROCODONE BITARTRATE [Concomitant]
  10. HYDROCHLOROTHIAZIDE [Concomitant]

REACTIONS (3)
  - BLOOD GLUCOSE INCREASED [None]
  - STAPHYLOCOCCAL ABSCESS [None]
  - SWEAT GLAND INFECTION [None]
